FAERS Safety Report 9423611 (Version 2)
Quarter: 2013Q4

REPORT INFORMATION
  Report Type: Spontaneous
  Country: US (occurrence: US)
  Receive Date: 20130726
  Receipt Date: 20131112
  Transmission Date: 20140711
  Serious: Yes (Hospitalization, Other)
  Sender: FDA-Public Use
  Company Number: US-GILEAD-2013-0080187

PATIENT
  Sex: Female

DRUGS (4)
  1. LETAIRIS [Suspect]
     Indication: PRODUCT USED FOR UNKNOWN INDICATION
     Dosage: 10 MG, QD
     Dates: start: 20111206
  2. TYVASO [Concomitant]
  3. REVATIO [Concomitant]
  4. XARELTO [Concomitant]

REACTIONS (2)
  - Femoral artery embolism [Unknown]
  - Fluid retention [Unknown]
